FAERS Safety Report 6516725-8 (Version None)
Quarter: 2009Q4

REPORT INFORMATION
  Report Type: 
  Country: None (occurrence: None)
  Receive Date: 20091223
  Receipt Date: 20091209
  Transmission Date: 20100525
  Serious: Yes (Other)
  Sender: FDA-Public Use
  Company Number: US-PFIZER INC-2009309062

PATIENT
  Age: 79 Year
  Sex: Male
  Weight: 91.625 kg

DRUGS (5)
  1. XALATAN [Suspect]
     Indication: GLAUCOMA
     Dosage: 1 DROP IN EACH EYE, 1X/DAY
     Route: 047
  2. DORZOLAMIDE HCL AND TIMOLOL MALEATE [Concomitant]
     Dosage: UNK
     Route: 047
  3. LEVOTHYROXINE [Concomitant]
     Indication: THYROID DISORDER
     Dosage: UNK
  4. QUINAPRIL HYDROCHLORIDE [Concomitant]
     Dosage: UNK
  5. NAPROXEN [Concomitant]
     Dosage: FREQUENCY: AS NEEDED,

REACTIONS (1)
  - NEPHROLITHIASIS [None]
